FAERS Safety Report 16300651 (Version 1)
Quarter: 2019Q2

REPORT INFORMATION
  Report Type: Spontaneous
  Country: CO (occurrence: CO)
  Receive Date: 20190510
  Receipt Date: 20190510
  Transmission Date: 20190711
  Serious: Yes (Hospitalization)
  Sender: FDA-Public Use
  Company Number: CO-ELI_LILLY_AND_COMPANY-CO201905003498

PATIENT
  Sex: Male
  Weight: 89 kg

DRUGS (5)
  1. ATORVASTATIN [Concomitant]
     Active Substance: ATORVASTATIN
     Indication: HYPERCHOLESTEROLAEMIA
     Dosage: 40 MG, BID
     Route: 048
     Dates: start: 20190417
  2. ENALAPRIL [Concomitant]
     Active Substance: ENALAPRIL
     Indication: INFARCTION
     Dosage: 5 MG, DAILY
     Route: 048
     Dates: start: 20190417
  3. EFFIENT [Suspect]
     Active Substance: PRASUGREL HYDROCHLORIDE
     Indication: INFARCTION
     Dosage: 10 MG, DAILY
     Route: 048
     Dates: start: 20190417
  4. ACETYLSALICYLIC ACID [Concomitant]
     Active Substance: ASPIRIN
     Indication: INFARCTION
     Dosage: 100 MG, ONCE EVERY 12HR
     Route: 048
     Dates: start: 20190417
  5. METOPROLOL. [Concomitant]
     Active Substance: METOPROLOL
     Indication: INFARCTION
     Dosage: 100 MG, UNK
     Route: 048
     Dates: start: 20190417

REACTIONS (1)
  - Device related infection [Not Recovered/Not Resolved]

NARRATIVE: CASE EVENT DATE: 20190426
